FAERS Safety Report 11386677 (Version 1)
Quarter: 2015Q3

REPORT INFORMATION
  Report Type: Spontaneous
  Country: US (occurrence: None)
  Receive Date: 20150814
  Receipt Date: 20150814
  Transmission Date: 20151125
  Serious: Yes (Hospitalization)
  Sender: FDA-Public Use
  Company Number: None

PATIENT
  Age: 69 Year
  Sex: Male
  Weight: 67.5 kg

DRUGS (15)
  1. ASA [Suspect]
     Active Substance: ASPIRIN
     Indication: CORONARY ARTERY DISEASE
     Dosage: CHRONIC
     Route: 048
  2. NEURONTIN [Concomitant]
     Active Substance: GABAPENTIN
  3. LOPRESSOR [Concomitant]
     Active Substance: METOPROLOL TARTRATE
  4. MIRALAX [Concomitant]
     Active Substance: POLYETHYLENE GLYCOL 3350
  5. LYRICA [Concomitant]
     Active Substance: PREGABALIN
  6. ACIDIPHILUS [Concomitant]
  7. ASCORBIC ACID. [Concomitant]
     Active Substance: ASCORBIC ACID
  8. OXY0IR [Concomitant]
  9. KEFLEX [Concomitant]
     Active Substance: CEPHALEXIN
  10. IMDUR [Concomitant]
     Active Substance: ISOSORBIDE MONONITRATE
  11. PROTONIX [Concomitant]
     Active Substance: PANTOPRAZOLE SODIUM
  12. FE [Concomitant]
     Active Substance: IRON
  13. THERAGAN [Concomitant]
  14. PLAVIX [Suspect]
     Active Substance: CLOPIDOGREL BISULFATE
     Indication: CORONARY ARTERY DISEASE
     Dosage: CHRONIC
     Route: 048
  15. VENTOLIN [Concomitant]
     Active Substance: ALBUTEROL SULFATE

REACTIONS (3)
  - Hiatus hernia [None]
  - Normochromic normocytic anaemia [None]
  - Lower gastrointestinal haemorrhage [None]

NARRATIVE: CASE EVENT DATE: 20150210
